APPROVED DRUG PRODUCT: XPOVIO
Active Ingredient: SELINEXOR
Strength: 50MG
Dosage Form/Route: TABLET;ORAL
Application: N212306 | Product #003
Applicant: KARYOPHARM THERAPEUTICS INC
Approved: Apr 15, 2021 | RLD: Yes | RS: No | Type: RX

PATENTS:
Patent 11034660 | Expires: Jul 26, 2032
Patent 11034660 | Expires: Jul 26, 2032
Patent 12291508 | Expires: Jul 26, 2032
Patent 12291508 | Expires: Jul 26, 2032
Patent 12291508 | Expires: Jul 26, 2032
Patent 11753401 | Expires: Aug 14, 2035
Patent 11753401 | Expires: Aug 14, 2035
Patent 11753401 | Expires: Aug 14, 2035
Patent 11746102 | Expires: Aug 14, 2035
Patent 11746102 | Expires: Aug 14, 2035
Patent 11746102 | Expires: Aug 14, 2035
Patent 11787771 | Expires: Jul 26, 2032
Patent 11787771 | Expires: Jul 26, 2032
Patent 11787771 | Expires: Jul 26, 2032
Patent 10519139 | Expires: Aug 14, 2035
Patent 10519139 | Expires: Aug 14, 2035
Patent 10519139 | Expires: Aug 14, 2035
Patent 9079865 | Expires: Jul 26, 2032
Patent 9079865 | Expires: Jul 26, 2032
Patent 9079865 | Expires: Jul 26, 2032
Patent 10544108 | Expires: Jul 26, 2032
Patent 10544108 | Expires: Jul 26, 2032
Patent 11807629 | Expires: Aug 14, 2035
Patent 8999996 | Expires: Jul 3, 2033
Patent 9714226 | Expires: Jul 26, 2032

EXCLUSIVITY:
Code: ODE* | Date: Dec 18, 2027
Code: ODE* | Date: Jul 3, 2026
Code: ODE* | Date: Jun 22, 2027